FAERS Safety Report 7948217-3 (Version None)
Quarter: 2011Q4

REPORT INFORMATION
  Report Type: 
  Country: None (occurrence: None)
  Receive Date: 20111130
  Receipt Date: 20111116
  Transmission Date: 20120403
  Serious: Yes (Hospitalization, Other)
  Sender: FDA-Public Use
  Company Number: US-CELGENEUS-163-21880-11103409

PATIENT
  Sex: Female
  Weight: 85.988 kg

DRUGS (36)
  1. LEVOTHYROXINE SODIUM [Concomitant]
     Indication: HYPOTHYROIDISM
     Dosage: 25 MICROGRAM
     Route: 048
     Dates: start: 20080101
  2. ZOFRAN [Concomitant]
     Indication: NAUSEA
     Dosage: 8 MILLIGRAM
     Route: 048
     Dates: start: 20111025, end: 20111027
  3. HEPARIN SODIUM [Concomitant]
     Dosage: 500 UNITS
     Route: 041
     Dates: start: 20111027, end: 20111027
  4. WELLBUTRIN XL [Concomitant]
     Indication: DEPRESSION
     Dosage: 300 MILLIGRAM
     Route: 048
     Dates: start: 20080101
  5. LIDOCAINE HCL VISCOUS [Concomitant]
     Dosage: 5 CC
     Route: 048
  6. POTASSIUM CHLORIDE [Concomitant]
     Dosage: 20 MILLIEQUIVALENTS
     Route: 048
     Dates: start: 20110901
  7. SODIUM CHLORIDE [Concomitant]
     Dosage: 500
     Route: 041
     Dates: start: 20111026, end: 20111026
  8. RED BLOOD CELLS [Concomitant]
     Dosage: 2 UNITS
     Route: 041
     Dates: start: 20111026, end: 20111026
  9. HYDROCHLOROTHIAZIDE [Concomitant]
     Dosage: 25 MILLIGRAM
     Route: 048
     Dates: start: 20090101
  10. MECLIZINE [Concomitant]
     Indication: VERTIGO
     Dosage: 25 MILLIGRAM
     Route: 048
     Dates: start: 20090101
  11. POLYETHYLENE GLYCOL [Concomitant]
     Dosage: 2CC
     Route: 048
     Dates: start: 20111026, end: 20111027
  12. RITUXIMAB [Suspect]
     Dosage: 375 MILLIGRAM/SQ. METER
     Route: 041
     Dates: start: 20110702, end: 20110829
  13. RITUXIMAB [Suspect]
     Dosage: 375 MILLIGRAM/SQ. METER
     Route: 041
     Dates: start: 20111024, end: 20111024
  14. BENDAMUSTINE [Suspect]
     Dosage: 90 MILLIGRAM/SQ. METER
     Route: 041
     Dates: start: 20111024, end: 20111024
  15. ZOCOR [Concomitant]
     Dosage: 40 MILLIGRAM
     Route: 048
     Dates: start: 20080101
  16. CALADRYL [Concomitant]
     Route: 061
     Dates: start: 20110501
  17. FISH OIL [Concomitant]
     Indication: SUPPLEMENTATION THERAPY
     Dosage: 1000 MILLIGRAM
     Route: 048
     Dates: start: 20110601
  18. OMEPRAZOLE [Concomitant]
     Dosage: 20 MILLIGRAM
     Route: 048
     Dates: start: 20111024, end: 20111027
  19. REVLIMID [Suspect]
     Route: 048
  20. BENDAMUSTINE [Suspect]
     Dosage: 90 MILLIGRAM/SQ. METER
     Route: 041
     Dates: start: 20110702, end: 20110829
  21. ALLOPURINOL [Concomitant]
  22. ZYRTEC [Concomitant]
     Dosage: 10 MILLIGRAM
     Route: 048
     Dates: start: 20080101
  23. ATIVAN [Concomitant]
     Indication: ANXIETY
     Dosage: 1 MILLIGRAM
     Route: 048
     Dates: start: 20090101
  24. MILES MOUTH WASH [Concomitant]
     Dosage: 5 CC
     Route: 048
  25. LYRICA [Concomitant]
     Indication: FIBROMYALGIA
     Dosage: 50 MILLIGRAM
     Route: 048
     Dates: start: 20080101
  26. MECLIZINE [Concomitant]
     Indication: TINNITUS
  27. ALLOPURINOL [Concomitant]
     Indication: PROPHYLAXIS
     Dosage: 100 MILLIGRAM
     Route: 048
     Dates: start: 20110601
  28. MAGIC MOUTH WASH [Concomitant]
     Dosage: 5 CC
     Route: 048
  29. SODIUM CHLORIDE [Concomitant]
     Dosage: 10 MILLILITER
     Route: 041
     Dates: start: 20111027, end: 20111027
  30. ACETAMINOPHEN [Concomitant]
     Dosage: 650 MILLIGRAM
     Route: 048
     Dates: start: 20111026, end: 20111026
  31. BUPROPION HCL [Concomitant]
     Dosage: 300 MILLIGRAM
     Route: 048
     Dates: start: 20111025, end: 20111027
  32. PROTONIX [Concomitant]
     Dosage: 40 MILLIGRAM
     Route: 048
     Dates: start: 20110601, end: 20110801
  33. LORAZEPAM [Concomitant]
     Indication: NAUSEA
     Dosage: .5 MILLIGRAM
     Route: 048
  34. VALTREX [Concomitant]
     Indication: HERPES ZOSTER
     Dosage: 1000 MILLIGRAM
     Route: 048
     Dates: start: 20111026, end: 20111027
  35. ETHYL CHLORIDE [Concomitant]
     Route: 061
     Dates: start: 20111027, end: 20111027
  36. DETROL LA [Concomitant]
     Indication: BLADDER DISORDER
     Dosage: 4 MILLIGRAM
     Route: 048
     Dates: start: 20090101

REACTIONS (8)
  - HYPONATRAEMIA [None]
  - FEBRILE NEUTROPENIA [None]
  - HYPOKALAEMIA [None]
  - RASH [None]
  - NECK PAIN [None]
  - NEUTROPHIL COUNT DECREASED [None]
  - FACIAL PAIN [None]
  - HAEMOGLOBIN DECREASED [None]
